FAERS Safety Report 15652955 (Version 2)
Quarter: 2018Q4

REPORT INFORMATION
  Report Type: Report from Study
  Country: MX (occurrence: MX)
  Receive Date: 20181123
  Receipt Date: 20181219
  Transmission Date: 20190205
  Serious: Yes (Other)
  Sender: FDA-Public Use
  Company Number: PHHY2018MX163900

PATIENT
  Age: 87 Year
  Sex: Female
  Weight: 65 kg

DRUGS (3)
  1. ALDACTONE [Concomitant]
     Active Substance: SPIRONOLACTONE
     Indication: CHRONIC OBSTRUCTIVE PULMONARY DISEASE
     Dosage: 1 OT, QD
     Route: 065
     Dates: start: 20180405
  2. ENTRESTO [Suspect]
     Active Substance: SACUBITRIL\VALSARTAN
     Indication: CARDIAC FAILURE
     Dosage: 50 MG, QD
     Route: 048
  3. INSPRA [Concomitant]
     Active Substance: EPLERENONE
     Indication: HEART VALVE CALCIFICATION
     Dosage: 1 OT, QD
     Route: 065
     Dates: start: 20180305

REACTIONS (3)
  - Femur fracture [Recovering/Resolving]
  - Product prescribing error [Unknown]
  - Pain [Unknown]

NARRATIVE: CASE EVENT DATE: 20181017
